FAERS Safety Report 6336851-6 (Version None)
Quarter: 2009Q3

REPORT INFORMATION
  Report Type: 
  Country: None (occurrence: None)
  Receive Date: 20090901
  Receipt Date: 20090827
  Transmission Date: 20100115
  Serious: No
  Sender: FDA-Public Use
  Company Number: US-B.I. PHARMACEUTICALS,INC./RIDGEFIELD-2009-BP-10143BP

PATIENT
  Sex: Female

DRUGS (2)
  1. SPIRIVA [Suspect]
     Indication: CHRONIC OBSTRUCTIVE PULMONARY DISEASE
     Dosage: 18 MCG
     Route: 055
     Dates: start: 20090501, end: 20090822
  2. SPIRIVA [Suspect]
     Indication: ASTHMA

REACTIONS (5)
  - DENTAL CARIES [None]
  - DRY MOUTH [None]
  - ENAMEL ANOMALY [None]
  - NAUSEA [None]
  - URINARY RETENTION [None]
